FAERS Safety Report 9032720 (Version 1)
Quarter: 2013Q1

REPORT INFORMATION
  Report Type: Spontaneous
  Country: US (occurrence: US)
  Receive Date: 20130128
  Receipt Date: 20130128
  Transmission Date: 20140127
  Serious: Yes (Other)
  Sender: FDA-Public Use
  Company Number: US-BIOGENIDEC-2012BI060856

PATIENT
  Age: 44 Year
  Sex: Female

DRUGS (1)
  1. AVONEX [Suspect]
     Indication: MULTIPLE SCLEROSIS
     Route: 030
     Dates: start: 20111115

REACTIONS (5)
  - Pituitary tumour [Not Recovered/Not Resolved]
  - Convulsion [Unknown]
  - Fall [Recovered/Resolved]
  - Depression [Unknown]
  - Asthenia [Unknown]
